FAERS Safety Report 7785447-8 (Version None)
Quarter: 2011Q3

REPORT INFORMATION
  Report Type: 
  Country: None (occurrence: None)
  Receive Date: 20110929
  Receipt Date: 20110919
  Transmission Date: 20111222
  Serious: Yes (Hospitalization)
  Sender: FDA-Public Use
  Company Number: PHEH2011US02873

PATIENT
  Sex: Male
  Weight: 72.57 kg

DRUGS (14)
  1. EXELON [Suspect]
     Dosage: 9.5 MG,  EVERY MORNING
     Route: 062
  2. MAGNESIUM COMPLEX [Concomitant]
     Dosage: 100 MG, BID
  3. DEXLANSOPRAZOLE [Concomitant]
     Dosage: 60 MG, QHS
     Route: 048
  4. KETOCONAZOLE [Concomitant]
     Dosage: UNK UKN, UNK
     Route: 048
  5. ASPIRIN [Concomitant]
     Dosage: 81 MG, QHS
     Route: 048
  6. QUININE SULFATE [Concomitant]
     Dosage: 325 MG, PRN
     Route: 048
  7. CRESTOR [Concomitant]
     Dosage: 10 MG, UNK
     Route: 048
  8. MUCINEX [Concomitant]
     Dosage: 600 MG, PRN
     Route: 048
  9. EFA PLUS [Concomitant]
     Dosage: UNK UKN, UNK
  10. NIZORAL [Concomitant]
     Dosage: UNK UKN, UNK
     Route: 048
  11. CELEBREX [Concomitant]
     Dosage: 100 MG, QD
     Route: 048
  12. FOLIC ACID [Concomitant]
     Dosage: 1000 UG, BID
     Route: 048
  13. MELATONIN [Concomitant]
     Dosage: 3 MG, QHS
     Route: 048
  14. ZYRTEC [Concomitant]
     Dosage: 10 MG, QD,EVERY MORNING
     Route: 048

REACTIONS (13)
  - VOMITING [None]
  - DIZZINESS [None]
  - GASTROENTERITIS [None]
  - ASTHENIA [None]
  - DEHYDRATION [None]
  - MALAISE [None]
  - CEREBROVASCULAR ACCIDENT [None]
  - HYPERHIDROSIS [None]
  - NAUSEA [None]
  - BLOOD PRESSURE SYSTOLIC INCREASED [None]
  - VESTIBULAR NEURONITIS [None]
  - VERTIGO [None]
  - FATIGUE [None]
